FAERS Safety Report 16941049 (Version 1)
Quarter: 2019Q4

REPORT INFORMATION
  Report Type: Spontaneous
  Country: BW (occurrence: BW)
  Receive Date: 20191021
  Receipt Date: 20191021
  Transmission Date: 20200122
  Serious: Yes (Other)
  Sender: FDA-Public Use
  Company Number: BW-SA-2019SA279310

PATIENT
  Age: 13 Year
  Sex: Female
  Weight: 28.85 kg

DRUGS (1)
  1. CEREZYME [Suspect]
     Active Substance: IMIGLUCERASE
     Indication: GAUCHER^S DISEASE TYPE I
     Dosage: QOW
     Route: 041
     Dates: start: 201702

REACTIONS (6)
  - Haemoglobin decreased [Not Recovered/Not Resolved]
  - Pancytopenia [Not Recovered/Not Resolved]
  - Hepatomegaly [Recovered/Resolved]
  - White blood cell count decreased [Not Recovered/Not Resolved]
  - Platelet count decreased [Not Recovered/Not Resolved]
  - Splenomegaly [Recovering/Resolving]
